FAERS Safety Report 8278781-9 (Version None)
Quarter: 2012Q2

REPORT INFORMATION
  Report Type: 
  Country: None (occurrence: None)
  Receive Date: 20120412
  Receipt Date: 20110526
  Transmission Date: 20120825
  Serious: No
  Sender: FDA-Public Use
  Company Number: US-ASTRAZENECA-2011SE33130

PATIENT
  Age: 61 Year
  Sex: Female

DRUGS (3)
  1. NEXIUM [Suspect]
     Route: 048
  2. CHEMOTHERAPY [Interacting]
  3. VICODIN [Concomitant]

REACTIONS (12)
  - ENDOSCOPY [None]
  - MALAISE [None]
  - ABDOMINAL PAIN UPPER [None]
  - CHEST PAIN [None]
  - DRUG DOSE OMISSION [None]
  - GASTROOESOPHAGEAL REFLUX DISEASE [None]
  - ALOPECIA [None]
  - VOMITING [None]
  - GASTRITIS [None]
  - LABELLED DRUG-DRUG INTERACTION MEDICATION ERROR [None]
  - OESOPHAGITIS [None]
  - OSTEOARTHRITIS [None]
